FAERS Safety Report 23559524 (Version 1)
Quarter: 2024Q1

REPORT INFORMATION
  Report Type: Spontaneous
  Country: US (occurrence: US)
  Receive Date: 20240223
  Receipt Date: 20240223
  Transmission Date: 20240410
  Serious: No
  Sender: FDA-Public Use
  Company Number: US-Covis Pharma GmbH-2024COV00183

PATIENT
  Sex: Female

DRUGS (1)
  1. ALTOPREV [Suspect]
     Active Substance: LOVASTATIN
     Indication: Blood cholesterol
     Route: 048

REACTIONS (1)
  - Product dose omission issue [Not Recovered/Not Resolved]
